FAERS Safety Report 14802819 (Version 2)
Quarter: 2018Q2

REPORT INFORMATION
  Report Type: Spontaneous
  Country: US (occurrence: US)
  Receive Date: 20180424
  Receipt Date: 20180514
  Transmission Date: 20180711
  Serious: Yes (Life-Threatening)
  Sender: FDA-Public Use
  Company Number: US-PFIZER INC-2018165173

PATIENT
  Age: 59 Year
  Sex: Female
  Weight: 52 kg

DRUGS (3)
  1. DAPTOMYCIN. [Suspect]
     Active Substance: DAPTOMYCIN
     Indication: OSTEOMYELITIS
     Dosage: 300 MG, 1X/DAY (Q 24 HOUR)(1 X DAILY)
     Route: 042
     Dates: start: 20180413
  2. CEFTRIAXONE. [Concomitant]
     Active Substance: CEFTRIAXONE
     Indication: OSTEOMYELITIS
     Dosage: 2 G, 1X/DAY
     Route: 042
     Dates: start: 20180418
  3. HEPARIN W/SODIUM CHLORIDE [Concomitant]
     Dosage: UNK (NS: 10ML; HEPARIN: 5ML/ SASH)
     Route: 042

REACTIONS (6)
  - Asthma [Recovered/Resolved]
  - Fatigue [Recovered/Resolved]
  - Respiratory tract congestion [Recovered/Resolved]
  - Chills [Recovered/Resolved]
  - Cyanosis [Unknown]
  - Hypotension [Recovered/Resolved]

NARRATIVE: CASE EVENT DATE: 20180418
